FAERS Safety Report 14717673 (Version 6)
Quarter: 2021Q3

REPORT INFORMATION
  Report Type: Spontaneous
  Country: US (occurrence: US)
  Receive Date: 20180404
  Receipt Date: 20210819
  Transmission Date: 20211014
  Serious: Yes (Hospitalization, Other)
  Sender: FDA-Public Use
  Company Number: US-SA-2018SA021519

PATIENT
  Age: 74 Year
  Sex: Male

DRUGS (9)
  1. ASPIR LOW [Concomitant]
     Active Substance: ASPIRIN
  2. DUPIXENT [Suspect]
     Active Substance: DUPILUMAB
     Dosage: 300 MG, QOW
     Route: 058
     Dates: end: 202012
  3. GLUCOTROL [Concomitant]
     Active Substance: GLIPIZIDE
  4. HYDROXYZINE [Concomitant]
     Active Substance: HYDROXYZINE HYDROCHLORIDE
  5. SYNTHROID [Concomitant]
     Active Substance: LEVOTHYROXINE SODIUM
  6. VENTOLIN [Concomitant]
     Active Substance: ALBUTEROL SULFATE
  7. JANUMET [Concomitant]
     Active Substance: METFORMIN HYDROCHLORIDE\SITAGLIPTIN PHOSPHATE
  8. DUPIXENT [Suspect]
     Active Substance: DUPILUMAB
     Indication: DERMATITIS ATOPIC
     Dosage: 600 MG, 1X
     Route: 058
     Dates: start: 201801, end: 201801
  9. TRIAMCINOLONE ACETONIDE. [Concomitant]
     Active Substance: TRIAMCINOLONE ACETONIDE

REACTIONS (6)
  - Dermatitis atopic [Unknown]
  - Product dose omission issue [Unknown]
  - Pruritus [Not Recovered/Not Resolved]
  - Hospitalisation [Unknown]
  - Drug ineffective [Unknown]
  - Hip fracture [Unknown]

NARRATIVE: CASE EVENT DATE: 2018
